FAERS Safety Report 4299949-2 (Version None)
Quarter: 2004Q1

REPORT INFORMATION
  Report Type: 
  Country: None (occurrence: None)
  Receive Date: 20040220
  Receipt Date: 20040209
  Transmission Date: 20041129
  Serious: Yes (Disabling, Other)
  Sender: FDA-Public Use
  Company Number: PHFR2004GB00988

PATIENT
  Age: 33 Year
  Sex: Male
  Weight: 74 kg

DRUGS (4)
  1. CLOZARIL [Suspect]
     Indication: SCHIZOPHRENIA
     Dosage: 900 MG, QD
     Route: 048
     Dates: start: 20010531, end: 20031220
  2. LAMICTAL [Suspect]
     Indication: EPILEPSY
     Dosage: 175 MG, QD
     Route: 048
     Dates: start: 20030828, end: 20031222
  3. VALPROIC ACID [Concomitant]
     Indication: MANIA
     Dosage: 2 G, QD
     Route: 048
     Dates: start: 20031128
  4. BENZTROPEINE [Concomitant]
     Indication: SEPSIS
     Dosage: 2 MG, TID
     Route: 048
     Dates: start: 20031104

REACTIONS (4)
  - CONVULSION [None]
  - DRUG INTERACTION [None]
  - DRUG LEVEL INCREASED [None]
  - MENTAL DISORDER [None]
